FAERS Safety Report 8066437-7 (Version None)
Quarter: 2012Q1

REPORT INFORMATION
  Report Type: 
  Country: None (occurrence: None)
  Receive Date: 20120124
  Receipt Date: 20120117
  Transmission Date: 20120608
  Serious: Yes (Other)
  Sender: FDA-Public Use
  Company Number: JP-AMGEN-JPNCT2011063632

PATIENT
  Age: 74 Year
  Sex: Female
  Weight: 46 kg

DRUGS (6)
  1. MUCOSTA [Concomitant]
     Indication: GASTRITIS
     Dosage: UNCERTAINTY
     Route: 048
  2. FERROUS CITRATE [Concomitant]
     Indication: IRON DEFICIENCY ANAEMIA
     Dosage: UNCERTAINTY
     Route: 048
     Dates: start: 20110214, end: 20110707
  3. ALFAROL [Concomitant]
     Indication: OSTEOPOROSIS
     Dosage: UNCERTAINTY
     Route: 048
  4. PENTAZOCINE LACTATE [Concomitant]
     Indication: SPINAL COLUMN STENOSIS
     Dosage: UNCERTAINTY
     Route: 048
  5. ROMIPLOSTIM - KHK [Suspect]
     Indication: IDIOPATHIC THROMBOCYTOPENIC PURPURA
     Dosage: 6 UNK, UNK
     Route: 058
     Dates: start: 20110615, end: 20110824
  6. VITAMEDIN [Concomitant]
     Indication: SPINAL COLUMN STENOSIS
     Dosage: UNCERTAINTY
     Route: 048

REACTIONS (2)
  - MYELODYSPLASTIC SYNDROME [None]
  - TONGUE HAEMATOMA [None]
